FAERS Safety Report 23214751 (Version 1)
Quarter: 2023Q4

REPORT INFORMATION
  Report Type: Spontaneous
  Country: US (occurrence: US)
  Receive Date: 20231121
  Receipt Date: 20231121
  Transmission Date: 20240110
  Serious: No
  Sender: FDA-Public Use
  Company Number: US-GSK-US2023157001

PATIENT
  Age: 80 Year
  Sex: Female

DRUGS (1)
  1. INCRUSE ELLIPTA [Suspect]
     Active Substance: UMECLIDINIUM BROMIDE
     Indication: Pulmonary hypertension
     Dosage: UNK

REACTIONS (1)
  - Sympathetic nerve destruction [Unknown]

NARRATIVE: CASE EVENT DATE: 20231113
